FAERS Safety Report 26139908 (Version 1)
Quarter: 2025Q4

REPORT INFORMATION
  Report Type: Spontaneous
  Country: CA (occurrence: CA)
  Receive Date: 20251210
  Receipt Date: 20251210
  Transmission Date: 20260117
  Serious: Yes (Hospitalization)
  Sender: PFIZER
  Company Number: CA-PFIZER INC-202500239267

PATIENT
  Age: 68 Year
  Sex: Female

DRUGS (3)
  1. RUXIENCE [Suspect]
     Active Substance: RITUXIMAB-PVVR
     Indication: Rheumatoid arthritis
     Dosage: 1000 MG, DAY 1 AND DAY 15
     Route: 042
     Dates: start: 20241016, end: 20241101
  2. RUXIENCE [Suspect]
     Active Substance: RITUXIMAB-PVVR
     Dosage: 1000 MG, DAY 1 AND DAY 15
     Route: 042
     Dates: start: 20250709, end: 20250723
  3. CORTISONE [Concomitant]
     Active Substance: CORTISONE
     Dosage: UNK, (DOSAGE WAS INCREASED FOR APPROXIMATELY 2 WEEKS AND THEN RETURNED TO THE NORMAL DOSE)

REACTIONS (6)
  - Viral infection [Recovered/Resolved]
  - Dyspnoea [Recovered/Resolved]
  - Aphonia [Recovered/Resolved]
  - Taste disorder [Recovered/Resolved]
  - Anosmia [Recovered/Resolved]
  - Hypertension [Recovered/Resolved]

NARRATIVE: CASE EVENT DATE: 20250101
